FAERS Safety Report 10133833 (Version 1)
Quarter: 2014Q2

REPORT INFORMATION
  Report Type: Spontaneous
  Country: IT (occurrence: IT)
  Receive Date: 20140428
  Receipt Date: 20140428
  Transmission Date: 20141212
  Serious: Yes (Hospitalization)
  Sender: FDA-Public Use
  Company Number: PHHY2014IT048748

PATIENT
  Age: 48 Year
  Sex: Male

DRUGS (2)
  1. PREDNISONE [Suspect]
     Indication: IMMUNOSUPPRESSION
     Dosage: 25 MG/DIE
  2. AZATHIOPRINE [Suspect]
     Indication: IMMUNOSUPPRESSION
     Dates: start: 20110201

REACTIONS (8)
  - Aortic valve incompetence [Unknown]
  - Pyrexia [Unknown]
  - Fatigue [Unknown]
  - C-reactive protein increased [Recovered/Resolved]
  - Bordetella infection [Recovered/Resolved]
  - Cardiac valve vegetation [Unknown]
  - Left ventricular failure [Unknown]
  - Endocarditis [Unknown]
